FAERS Safety Report 7401206-X (Version None)
Quarter: 2011Q2

REPORT INFORMATION
  Report Type: 
  Country: None (occurrence: None)
  Receive Date: 20110407
  Receipt Date: 20110405
  Transmission Date: 20111010
  Serious: Yes (Other)
  Sender: FDA-Public Use
  Company Number: CHPA2011GB04940

PATIENT
  Age: 40 Year
  Sex: Male
  Weight: 68 kg

DRUGS (1)
  1. NICOTINE [Suspect]
     Dosage: UNK, UNK
     Route: 062
     Dates: start: 20060108, end: 20060110

REACTIONS (3)
  - SKIN DISCOLOURATION [None]
  - INCORRECT DRUG ADMINISTRATION DURATION [None]
  - THERMAL BURN [None]
